FAERS Safety Report 12945762 (Version 1)
Quarter: 2016Q4

REPORT INFORMATION
  Report Type: Spontaneous
  Country: MY (occurrence: MY)
  Receive Date: 20161116
  Receipt Date: 20161116
  Transmission Date: 20170207
  Serious: Yes (Death, Other)
  Sender: FDA-Public Use
  Company Number: MY-ROCHE-1853535

PATIENT
  Age: 49 Year
  Sex: Male

DRUGS (10)
  1. DEXAMETHASONE. [Suspect]
     Active Substance: DEXAMETHASONE
     Indication: PLASMABLASTIC LYMPHOMA
     Route: 065
  2. RITUXIMAB [Suspect]
     Active Substance: RITUXIMAB
     Indication: PLASMABLASTIC LYMPHOMA
     Route: 042
  3. VINCRISTINE [Suspect]
     Active Substance: VINCRISTINE
     Indication: PLASMABLASTIC LYMPHOMA
     Route: 065
  4. PREDNISOLONE. [Concomitant]
     Active Substance: PREDNISOLONE
     Indication: AUTOIMMUNE HAEMOLYTIC ANAEMIA
     Route: 065
  5. CYCLOPHOSPHAMIDE. [Suspect]
     Active Substance: CYCLOPHOSPHAMIDE
     Indication: PLASMABLASTIC LYMPHOMA
     Route: 065
  6. METHOTREXATE. [Suspect]
     Active Substance: METHOTREXATE
     Indication: PROPHYLACTIC CHEMOTHERAPY
     Route: 037
  7. DOXORUBICIN [Suspect]
     Active Substance: DOXORUBICIN
     Indication: PLASMABLASTIC LYMPHOMA
     Route: 065
  8. PREDNISOLONE. [Suspect]
     Active Substance: PREDNISOLONE
     Indication: PLASMABLASTIC LYMPHOMA
     Route: 065
  9. HYDROCORTISONE. [Suspect]
     Active Substance: HYDROCORTISONE
     Indication: PROPHYLACTIC CHEMOTHERAPY
     Route: 037
  10. CYTARABINE. [Suspect]
     Active Substance: CYTARABINE
     Indication: PROPHYLACTIC CHEMOTHERAPY
     Route: 037

REACTIONS (4)
  - Neutropenic sepsis [Recovering/Resolving]
  - Pneumonitis [Fatal]
  - Acute respiratory distress syndrome [Fatal]
  - Pneumocystis jirovecii pneumonia [Fatal]
